FAERS Safety Report 25464296 (Version 1)
Quarter: 2025Q2

REPORT INFORMATION
  Report Type: Spontaneous
  Country: US (occurrence: US)
  Receive Date: 20250621
  Receipt Date: 20250621
  Transmission Date: 20250716
  Serious: Yes (Hospitalization, Other)
  Sender: UNITED THERAPEUTICS
  Company Number: US-UNITED THERAPEUTICS-UNT-2025-018074

PATIENT
  Sex: Male
  Weight: 67.12 kg

DRUGS (31)
  1. TYVASO [Suspect]
     Active Substance: TREPROSTINIL
     Indication: Pulmonary arterial hypertension
     Dosage: 72 ?G, QID
     Dates: start: 202505
  2. TYVASO [Suspect]
     Active Substance: TREPROSTINIL
  3. OXYGEN [Concomitant]
     Active Substance: OXYGEN
     Indication: Oxygen saturation decreased
  4. OXYGEN [Concomitant]
     Active Substance: OXYGEN
  5. OXYGEN [Concomitant]
     Active Substance: OXYGEN
  6. OXYGEN [Concomitant]
     Active Substance: OXYGEN
  7. SPIRIVA RESPIMAT [Concomitant]
     Active Substance: TIOTROPIUM BROMIDE
     Indication: Product used for unknown indication
     Dosage: 2.5 MCG, QD (2.5 MCG/ACTUATION 1 PUFF)
     Dates: start: 20250114
  8. DUONEB [Concomitant]
     Active Substance: ALBUTEROL SULFATE\IPRATROPIUM BROMIDE
     Indication: Product used for unknown indication
     Dosage: UNK, QID (0.5 MG-3 MG) (2.5 MG BASE)/3 ML), INHALE 3 ML
     Dates: start: 20250407
  9. CALCIUM [Concomitant]
     Active Substance: CALCIUM
     Indication: Product used for unknown indication
  10. BREO ELLIPTA [Concomitant]
     Active Substance: FLUTICASONE FUROATE\VILANTEROL TRIFENATATE
     Indication: Product used for unknown indication
  11. KLOR-CON M20 [Concomitant]
     Active Substance: POTASSIUM CHLORIDE
     Indication: Product used for unknown indication
     Dosage: 20 UNK, QD [MEQ]
     Dates: start: 20250317
  12. ADCIRCA [Concomitant]
     Active Substance: TADALAFIL
     Indication: Product used for unknown indication
     Dosage: 40 MG, QD
     Dates: start: 20250407
  13. NEXIUM [Concomitant]
     Active Substance: ESOMEPRAZOLE MAGNESIUM
     Indication: Product used for unknown indication
  14. PRAVACHOL [Concomitant]
     Active Substance: PRAVASTATIN SODIUM
     Indication: Product used for unknown indication
     Dosage: 20 MG, QHS
     Dates: start: 20250418
  15. PROAIR HFA [Concomitant]
     Active Substance: ALBUTEROL SULFATE
     Indication: Product used for unknown indication
     Dosage: UNK, QID (90 MCG), INHALE 2 PUFFS) [AS NEEDED]
     Dates: start: 20241113
  16. PROVENTIL [Concomitant]
     Active Substance: ALBUTEROL
     Indication: Product used for unknown indication
     Dosage: UNK, QID (90 MCG), (INHALE 2 PUFFS) [PRN]
     Dates: start: 20241113
  17. VENTOLIN HFA [Concomitant]
     Active Substance: ALBUTEROL SULFATE
     Indication: Product used for unknown indication
     Dosage: UNK, QID (90 MCG), (INHALE 2 PUFFS) [PRN]
     Dates: start: 20241113
  18. BROVANA [Concomitant]
     Active Substance: ARFORMOTEROL TARTRATE
     Indication: Product used for unknown indication
     Dosage: 15 MCG, BID (15 MCG/2 ML)
  19. OSCAL D [Concomitant]
     Active Substance: CALCIUM CARBONATE\CHOLECALCIFEROL
     Indication: Product used for unknown indication
     Dosage: UNK, BID ( 500 MG-200 UNIT)
     Dates: start: 20250114
  20. FLONASE [Concomitant]
     Active Substance: FLUTICASONE PROPIONATE
     Indication: Product used for unknown indication
  21. FLUTICASONE FUROATE\VILANTEROL TRIFENATATE [Concomitant]
     Active Substance: FLUTICASONE FUROATE\VILANTEROL TRIFENATATE
     Indication: Product used for unknown indication
     Dosage: 100-25 MCG/DOSE (1 PUFF IN LUNGS)
     Dates: start: 20250116
  22. LASIX [Concomitant]
     Active Substance: FUROSEMIDE
     Indication: Product used for unknown indication
     Dosage: 40 MG, QD
     Dates: start: 20250317
  23. LASIX [Concomitant]
     Active Substance: FUROSEMIDE
     Dosage: 20 MG, BID (1 TAB IN AM/ 1/2 IN EVENING)
  24. ASPIRIN [Concomitant]
     Active Substance: ASPIRIN
     Indication: Product used for unknown indication
     Dosage: 81 MG, QD (WITH BREAKFAST)
     Dates: start: 20250115
  25. OCEAN SALINE NASAL SPRAY [Concomitant]
     Active Substance: SODIUM CHLORIDE
     Indication: Respiratory tract congestion
  26. CIALIS [Concomitant]
     Active Substance: TADALAFIL
     Indication: Product used for unknown indication
  27. CIALIS [Concomitant]
     Active Substance: TADALAFIL
     Dosage: 40 MG, QD
     Dates: start: 20250407
  28. FLUTICASONE FUROATE [Concomitant]
     Active Substance: FLUTICASONE FUROATE
     Indication: Product used for unknown indication
     Dosage: UNK, QD (100 MCG)1 PUFF IN LUNGS)
     Dates: end: 2025
  29. CEFEPIME [Concomitant]
     Active Substance: CEFEPIME HYDROCHLORIDE
     Indication: Pneumonia viral
  30. AZITHROMYCIN [Concomitant]
     Active Substance: AZITHROMYCIN
     Indication: Pneumonia viral
  31. AMOXICILLIN [Concomitant]
     Active Substance: AMOXICILLIN
     Indication: Pneumonia viral

REACTIONS (18)
  - Pneumonia viral [Unknown]
  - Pneumonitis [Unknown]
  - Oxygen saturation decreased [Unknown]
  - Asthenia [Unknown]
  - Pulmonary oedema [Unknown]
  - Oedema peripheral [Recovering/Resolving]
  - Gait disturbance [Unknown]
  - Dyspnoea exertional [Unknown]
  - Tremor [Unknown]
  - Intention tremor [Unknown]
  - Appetite disorder [Unknown]
  - Back pain [Unknown]
  - Seasonal allergy [Unknown]
  - Heart sounds abnormal [Unknown]
  - Lung diffusion test decreased [Unknown]
  - Product use complaint [Unknown]
  - Product dose omission issue [Unknown]
  - Device malfunction [Unknown]

NARRATIVE: CASE EVENT DATE: 20250101
